FAERS Safety Report 15844566 (Version 2)
Quarter: 2019Q1

REPORT INFORMATION
  Report Type: Report from Study
  Country: BR (occurrence: BR)
  Receive Date: 20190118
  Receipt Date: 20190207
  Transmission Date: 20190417
  Serious: Yes (Other)
  Sender: FDA-Public Use
  Company Number: PHHY2018BR026312

PATIENT
  Age: 58 Year
  Sex: Female
  Weight: 79.1 kg

DRUGS (3)
  1. COSENTYX [Suspect]
     Active Substance: SECUKINUMAB
     Indication: ANKYLOSING SPONDYLITIS
     Dosage: 150 MG, QW
     Route: 058
     Dates: start: 20180527
  2. COSENTYX [Suspect]
     Active Substance: SECUKINUMAB
     Dosage: 150 MG, QMO
     Route: 058
     Dates: start: 20190109
  3. COSENTYX [Suspect]
     Active Substance: SECUKINUMAB
     Dosage: 150 MG, QMO
     Route: 058
     Dates: start: 20181210

REACTIONS (13)
  - Pain [Recovered/Resolved]
  - Malaise [Recovered/Resolved]
  - Burning sensation [Recovered/Resolved]
  - Tension [Recovered/Resolved]
  - Disorientation [Unknown]
  - Cough [Recovering/Resolving]
  - Feeling cold [Recovering/Resolving]
  - Sinusitis [Recovering/Resolving]
  - Therapeutic response unexpected [Unknown]
  - Oropharyngeal pain [Recovering/Resolving]
  - Influenza [Unknown]
  - Blood pressure decreased [Unknown]
  - Fatigue [Recovering/Resolving]

NARRATIVE: CASE EVENT DATE: 201812
